FAERS Safety Report 15021071 (Version 2)
Quarter: 2018Q3

REPORT INFORMATION
  Report Type: Spontaneous
  Country: US (occurrence: US)
  Receive Date: 20180618
  Receipt Date: 20180731
  Transmission Date: 20181010
  Serious: No
  Sender: FDA-Public Use
  Company Number: US-PFIZER INC-2018222479

PATIENT
  Age: 66 Year
  Sex: Female
  Weight: 47 kg

DRUGS (7)
  1. SOLU?CORTEF [Suspect]
     Active Substance: HYDROCORTISONE SODIUM SUCCINATE
     Dosage: 100 MG, AS NEEDED
     Dates: start: 2013
  2. SOLU?CORTEF [Suspect]
     Active Substance: HYDROCORTISONE SODIUM SUCCINATE
     Dosage: UNK
  3. SOLU?CORTEF [Suspect]
     Active Substance: HYDROCORTISONE SODIUM SUCCINATE
     Indication: ADDISON^S DISEASE
     Dosage: 100 MG (EVERY DAY FOR 4 OR 5 DAYS, EVERY OTHER DAY FOR COUPLE DAYS, THEN EVERY 3RD DAY OR AS NEEDED)
  4. SOLU?CORTEF [Suspect]
     Active Substance: HYDROCORTISONE SODIUM SUCCINATE
     Dosage: UNK
     Dates: start: 201804
  5. SOLU?CORTEF [Suspect]
     Active Substance: HYDROCORTISONE SODIUM SUCCINATE
     Dosage: UNK, (WEAN OFF, TAKING IT EVERY OTHER DAY FOR A COUPLE OF DAYS, BEFORE STOPPING COMPLETELY)
  6. SOLU?CORTEF [Suspect]
     Active Substance: HYDROCORTISONE SODIUM SUCCINATE
     Dosage: UNK
  7. SOLU?CORTEF [Suspect]
     Active Substance: HYDROCORTISONE SODIUM SUCCINATE
     Dosage: UNK

REACTIONS (9)
  - Needle issue [Unknown]
  - Dizziness [Unknown]
  - Product preparation error [Unknown]
  - Injection site pain [Unknown]
  - Drug dose omission [Unknown]
  - Weight decreased [Unknown]
  - Expired product administered [Unknown]
  - Product quality issue [Unknown]
  - Fatigue [Unknown]

NARRATIVE: CASE EVENT DATE: 201801
